FAERS Safety Report 20639415 (Version 1)
Quarter: 2022Q1

REPORT INFORMATION
  Report Type: Spontaneous
  Country: None (occurrence: JP)
  Receive Date: 20220326
  Receipt Date: 20220326
  Transmission Date: 20220423
  Serious: Yes (Death)
  Sender: FDA-Public Use
  Company Number: JP-MLV Pharma LLC-2127130

PATIENT
  Age: 68 Year
  Sex: Female

DRUGS (1)
  1. BETAMETHASONE DIPROPIONATE [Suspect]
     Active Substance: BETAMETHASONE DIPROPIONATE
     Indication: Brain oedema
     Route: 065

REACTIONS (2)
  - Diabetes insipidus [Unknown]
  - Polyuria [Unknown]
